FAERS Safety Report 11243344 (Version 1)
Quarter: 2015Q3

REPORT INFORMATION
  Report Type: Other
  Country: GB (occurrence: GB)
  Receive Date: 20150707
  Receipt Date: 20150707
  Transmission Date: 20151125
  Serious: Yes (Hospitalization)
  Sender: FDA-Public Use
  Company Number: GB-MYLANLABS-2015M1021363

PATIENT

DRUGS (7)
  1. NAPROXEN. [Suspect]
     Active Substance: NAPROXEN
     Dosage: 500 MG, BID (PATIENT TAKES DAILY MOST DAYS.)
     Route: 048
  2. CODEINE [Concomitant]
     Active Substance: CODEINE
     Dosage: 60 MG, QID (AS REQUIRED.)
     Route: 048
  3. SERTRALINE [Concomitant]
     Active Substance: SERTRALINE HYDROCHLORIDE
     Dosage: 100 MG, QD
     Route: 048
  4. ESOMEPRAZOLE [Concomitant]
     Active Substance: ESOMEPRAZOLE
     Dosage: 40 MG, QD (STARTED ON ADMISSION. PATIENT PREVIOUSLY ON LANSOPRAZOLE 30MG ONCE A DAY.)
     Route: 048
  5. ATENOLOL. [Concomitant]
     Active Substance: ATENOLOL
     Dosage: 100 MG, QD
     Route: 048
  6. VALSARTAN. [Concomitant]
     Active Substance: VALSARTAN
     Dosage: 160 MG, QD
     Route: 048
  7. SIMVASTATIN. [Concomitant]
     Active Substance: SIMVASTATIN
     Dosage: 20 MG, QD (AT NIGHT.)
     Route: 048

REACTIONS (2)
  - Abdominal pain [Unknown]
  - Hiatus hernia [Unknown]
